FAERS Safety Report 16348434 (Version 1)
Quarter: 2019Q2

REPORT INFORMATION
  Report Type: Report from Study
  Country: US (occurrence: US)
  Receive Date: 20190523
  Receipt Date: 20190523
  Transmission Date: 20190711
  Serious: Yes (Hospitalization)
  Sender: FDA-Public Use
  Company Number: US-ACTELION-A-NJ2019-190460

PATIENT
  Age: 71 Year
  Sex: Female

DRUGS (28)
  1. IPRATROPIUM BROMIDE AND ALBUTEROL SULFATE [Concomitant]
     Active Substance: ALBUTEROL SULFATE\IPRATROPIUM BROMIDE
     Dosage: UNK, PRN
     Dates: start: 20170130
  2. POTASSIUM [Concomitant]
     Active Substance: POTASSIUM
     Dosage: UNK
     Dates: start: 20190327
  3. PRAVASTATIN. [Concomitant]
     Active Substance: PRAVASTATIN
     Dosage: 10 MG
     Dates: start: 20170130
  4. ZOLPIDEM [Concomitant]
     Active Substance: ZOLPIDEM\ZOLPIDEM TARTRATE
     Dosage: 5 MG
     Dates: start: 20170130
  5. FUROSEMIDE. [Concomitant]
     Active Substance: FUROSEMIDE
     Dosage: UNK
     Dates: start: 20190227
  6. ASPIRIN. [Concomitant]
     Active Substance: ASPIRIN
     Dosage: 81 MG
     Dates: start: 20170130
  7. ZANTAC [Concomitant]
     Active Substance: RANITIDINE HYDROCHLORIDE
     Dosage: 150 MG
     Dates: start: 20180502
  8. ADCIRCA [Concomitant]
     Active Substance: TADALAFIL
     Dosage: 20 MG
     Dates: start: 20170130
  9. FUROSEMIDE. [Concomitant]
     Active Substance: FUROSEMIDE
     Dosage: 40 MG
     Dates: start: 20170130
  10. MUCINEX [Concomitant]
     Active Substance: GUAIFENESIN
     Dosage: 600 MG
     Dates: start: 20170130
  11. PRAVASTATIN. [Concomitant]
     Active Substance: PRAVASTATIN
     Dosage: 20 UNK
     Dates: start: 20190326
  12. VITAMIN D [Concomitant]
     Active Substance: VITAMIN D NOS
     Dosage: 5000 UNITS
     Dates: start: 20180502
  13. ALLEGRA [Concomitant]
     Active Substance: FEXOFENADINE HYDROCHLORIDE
     Dosage: UNK
     Dates: start: 20170130
  14. OPSUMIT [Suspect]
     Active Substance: MACITENTAN
     Indication: PULMONARY ARTERIAL HYPERTENSION
     Dosage: 10 MG, QD
     Route: 048
     Dates: start: 20150311
  15. THEOPHYLLINE [Concomitant]
     Active Substance: THEOPHYLLINE ANHYDROUS
     Dosage: 300 MG
     Dates: start: 20170130
  16. AMITRIPTYLIN [Concomitant]
     Active Substance: AMITRIPTYLINE
     Dosage: UNK
     Dates: start: 20190305
  17. DALIRESP [Concomitant]
     Active Substance: ROFLUMILAST
     Dosage: 500 MG
     Dates: start: 20190506
  18. THEOPHYLLINE [Concomitant]
     Active Substance: THEOPHYLLINE ANHYDROUS
     Dosage: 300 UNK
     Dates: start: 20180601, end: 20180830
  19. AMITRIPTYLIN [Concomitant]
     Active Substance: AMITRIPTYLINE
     Dosage: 25 MG
     Dates: start: 20170130
  20. ALBUTEROL. [Concomitant]
     Active Substance: ALBUTEROL
     Dosage: 2 MG
     Dates: start: 20170130
  21. ZOLPIDEM [Concomitant]
     Active Substance: ZOLPIDEM\ZOLPIDEM TARTRATE
     Dosage: UNK
     Dates: start: 20190205
  22. MONTELUKAST [Concomitant]
     Active Substance: MONTELUKAST SODIUM
     Dosage: 10 MG
     Dates: start: 20170130
  23. MONTELUKAST [Concomitant]
     Active Substance: MONTELUKAST SODIUM
     Dosage: 10 UNK
     Dates: start: 20190325
  24. DALIRESP [Concomitant]
     Active Substance: ROFLUMILAST
     Dosage: 500 MCG
     Dates: start: 20170130
  25. CITALOPRAM [Concomitant]
     Active Substance: CITALOPRAM HYDROBROMIDE
     Dosage: 40 UNK
     Dates: start: 20190424
  26. CITALOPRAM [Concomitant]
     Active Substance: CITALOPRAM HYDROBROMIDE
     Dosage: 20 MG
     Dates: start: 20170130
  27. POTASSIUM [Concomitant]
     Active Substance: POTASSIUM
     Dosage: 75 MG
     Dates: start: 20170130
  28. PRESERVISION [Concomitant]
     Active Substance: MINERALS\VITAMINS
     Dosage: UNK
     Dates: start: 20170130

REACTIONS (9)
  - Bronchitis [Unknown]
  - Type V hyperlipidaemia [Unknown]
  - Major depression [Unknown]
  - Urinary tract infection [Unknown]
  - Haemorrhoid operation [Recovered/Resolved]
  - Respiratory disorder [Unknown]
  - Hernia repair [Recovered/Resolved]
  - Hypertension [Unknown]
  - Fungal infection [Unknown]

NARRATIVE: CASE EVENT DATE: 20150605
